FAERS Safety Report 9502193 (Version 1)
Quarter: 2013Q3

REPORT INFORMATION
  Report Type: Report from Study
  Country: US (occurrence: US)
  Receive Date: 20130906
  Receipt Date: 20130906
  Transmission Date: 20140515
  Serious: Yes (Other)
  Sender: FDA-Public Use
  Company Number: US-ABBOTT-13P-163-1141378-00

PATIENT
  Age: 69 Year
  Sex: Male
  Weight: 76.27 kg

DRUGS (11)
  1. HUMIRA [Suspect]
     Indication: PSORIASIS
     Dates: start: 201302
  2. PLAVIX [Concomitant]
     Indication: CARDIAC DISORDER
  3. METOPROLOL [Concomitant]
     Indication: HYPERTENSION
  4. ISOSORBIDE [Concomitant]
     Indication: CARDIAC DISORDER
  5. FINESTRIDE [Concomitant]
     Indication: PROSTATOMEGALY
  6. TAMSULOSIN [Concomitant]
     Indication: PROSTATOMEGALY
  7. OMEPRAZOLE [Concomitant]
     Indication: GASTROOESOPHAGEAL REFLUX DISEASE
  8. CRESTOR [Concomitant]
     Indication: BLOOD CHOLESTEROL INCREASED
  9. BABY ASPIRIN [Concomitant]
     Indication: CARDIAC DISORDER
  10. TYLENOL [Concomitant]
     Indication: PRODUCT USED FOR UNKNOWN INDICATION
  11. IBUPROFEN [Concomitant]
     Indication: PRODUCT USED FOR UNKNOWN INDICATION

REACTIONS (3)
  - Urethral obstruction [Recovering/Resolving]
  - Adhesion [Recovering/Resolving]
  - Urinary retention [Recovering/Resolving]
